FAERS Safety Report 6857916-6 (Version None)
Quarter: 2010Q3

REPORT INFORMATION
  Report Type: 
  Country: None (occurrence: None)
  Receive Date: 20100714
  Receipt Date: 20100702
  Transmission Date: 20110219
  Serious: Yes (Hospitalization, Other)
  Sender: FDA-Public Use
  Company Number: 011580

PATIENT
  Sex: Male

DRUGS (8)
  1. KEPPRA [Suspect]
     Indication: EPILEPSY
     Dosage: (750 MG BID ORAL)
     Route: 048
     Dates: start: 20090101, end: 20100501
  2. AMLODIPIN /00972403/ [Concomitant]
  3. TOPAMAX [Concomitant]
  4. MICARDIS [Concomitant]
  5. PANTOZOL /01263202/ [Concomitant]
  6. TORSEMIDE [Concomitant]
  7. ANTELESPIN [Concomitant]
  8. BELOC /00376902/ [Concomitant]

REACTIONS (12)
  - BLOOD BICARBONATE DECREASED [None]
  - BLOOD PHOSPHORUS INCREASED [None]
  - BLOOD SODIUM INCREASED [None]
  - BLOOD THYROID STIMULATING HORMONE DECREASED [None]
  - DIALYSIS [None]
  - HAEMATOCRIT DECREASED [None]
  - HAEMOGLOBIN DECREASED [None]
  - IGA NEPHROPATHY [None]
  - PO2 DECREASED [None]
  - PO2 INCREASED [None]
  - RED BLOOD CELL COUNT DECREASED [None]
  - RENAL FAILURE ACUTE [None]
